FAERS Safety Report 16008532 (Version 1)
Quarter: 2019Q1

REPORT INFORMATION
  Report Type: Report from Study
  Country: US (occurrence: US)
  Receive Date: 20190226
  Receipt Date: 20190226
  Transmission Date: 20190418
  Serious: No
  Sender: FDA-Public Use
  Company Number: US-AMAG PHARMACEUTICALS, INC.-AMAG201806519

PATIENT
  Age: 32 Year
  Sex: Female

DRUGS (1)
  1. INTRAROSA [Suspect]
     Active Substance: PRASTERONE
     Indication: VULVOVAGINAL PAIN
     Dosage: UNK
     Route: 067

REACTIONS (4)
  - Muscle spasms [Unknown]
  - Burning sensation [Unknown]
  - Off label use [Unknown]
  - Micturition urgency [Unknown]
